FAERS Safety Report 9080227 (Version 1)
Quarter: 2013Q1

REPORT INFORMATION
  Report Type: Spontaneous
  Country: GB (occurrence: GB)
  Receive Date: 20130130
  Receipt Date: 20130130
  Transmission Date: 20140127
  Serious: Yes (Other)
  Sender: FDA-Public Use
  Company Number: GB-TEVA-382857ISR

PATIENT
  Age: 23 Year
  Sex: Male
  Weight: 90 kg

DRUGS (2)
  1. TRAZODONE [Suspect]
     Indication: DEPRESSION
     Dosage: 50 MILLIGRAM DAILY;
     Route: 048
  2. TRAZODONE [Suspect]
     Route: 048

REACTIONS (4)
  - Rash [Recovered/Resolved]
  - Joint swelling [Recovered/Resolved]
  - Joint warmth [Recovered/Resolved]
  - Erythema [Recovered/Resolved]
